FAERS Safety Report 14738036 (Version 17)
Quarter: 2022Q1

REPORT INFORMATION
  Report Type: Spontaneous
  Country: GB (occurrence: GB)
  Receive Date: 20180409
  Receipt Date: 20220322
  Transmission Date: 20220423
  Serious: Yes (Other)
  Sender: FDA-Public Use
  Company Number: GB-MYLANLABS-2017M1003714

PATIENT
  Age: 61 Year
  Sex: Female
  Weight: 60.1 kg

DRUGS (21)
  1. LORAZEPAM [Suspect]
     Active Substance: LORAZEPAM
     Dosage: 1 MG, AS NEEDED
     Route: 048
  2. LORAZEPAM [Suspect]
     Active Substance: LORAZEPAM
     Dosage: 50 MG, 2X/DAY
     Route: 048
  3. AMISULPRIDE [Suspect]
     Active Substance: AMISULPRIDE
     Dosage: 200 MILLIGRAM, QD (400 MILLIGRAM DAILY))
     Route: 048
  4. AMISULPRIDE [Suspect]
     Active Substance: AMISULPRIDE
     Dosage: 800 MILLIGRAM, QD (200 MG, BID,UNIT DOSE : 800 MG )
  5. AMISULPRIDE [Suspect]
     Active Substance: AMISULPRIDE
     Dosage: 400 MILLIGRAM, QD (200 MG, BID)
     Route: 048
  6. AMISULPRIDE [Suspect]
     Active Substance: AMISULPRIDE
     Dosage: 200 MILLIGRAM, QD
     Route: 048
  7. PIRENZEPINE [Suspect]
     Active Substance: PIRENZEPINE
     Dosage: 50 MILLIGRAM, BID (100 MILLIGRAM DAILY; 50 MG, BID
     Route: 048
  8. PIRENZEPINE [Suspect]
     Active Substance: PIRENZEPINE
     Dosage: 200 MILLIGRAM (100 MILLIGRAM DAILY; 50 MG, BID,UNIT DOSE : 200 MG)
  9. PIRENZEPINE [Suspect]
     Active Substance: PIRENZEPINE
     Dosage: 600 MG, 1X/DAY
     Route: 048
  10. PIRENZEPINE [Suspect]
     Active Substance: PIRENZEPINE
     Dosage: 600 MG, DAILY
     Route: 048
  11. PIRENZEPINE [Suspect]
     Active Substance: PIRENZEPINE
     Dosage: 100 MILLIGRAM, QD (50 MG, BID)
  12. PIRENZEPINE [Suspect]
     Active Substance: PIRENZEPINE
     Dosage: UNK
  13. CITALOPRAM [Suspect]
     Active Substance: CITALOPRAM HYDROBROMIDE
     Dosage: 30 MG, DAILY
     Route: 048
  14. CITALOPRAM [Suspect]
     Active Substance: CITALOPRAM HYDROBROMIDE
     Dosage: 30 MILLIGRAM, QD (DAILY)
  15. VALPROATE SODIUM [Suspect]
     Active Substance: VALPROATE SODIUM
     Dosage: 600 MG, 2X/DAY
     Route: 048
  16. VALPROATE SODIUM [Suspect]
     Active Substance: VALPROATE SODIUM
     Dosage: 600 MG, 1X/DAY
     Route: 048
  17. VALPROATE SODIUM [Suspect]
     Active Substance: VALPROATE SODIUM
     Dosage: 1200 MILLIGRAM, QD(600 MG, BID )
     Route: 048
  18. VALPROATE SODIUM [Suspect]
     Active Substance: VALPROATE SODIUM
     Dosage: 600 MILLIGRAM, QD (600 MILLIGRAM DAILY; 600 MG, QD , THERAPY START DATE AND END DATE : ASKU )
     Route: 048
  19. VALPROATE SODIUM [Suspect]
     Active Substance: VALPROATE SODIUM
     Dosage: 1200 MILLIGRAM, QD (600 MG, BID)
  20. CLOZARIL [Suspect]
     Active Substance: CLOZAPINE
     Indication: Schizophrenia
     Dosage: 400 MG, 1X/DAY (IN THE AFTERNOON)
     Route: 048
     Dates: start: 20030116
  21. CLOZARIL [Suspect]
     Active Substance: CLOZAPINE
     Dosage: 200 MG, 2X/DAY
     Route: 048

REACTIONS (2)
  - Differential white blood cell count abnormal [Recovering/Resolving]
  - Neutrophil count abnormal [Recovering/Resolving]

NARRATIVE: CASE EVENT DATE: 20170118
